FAERS Safety Report 8760828 (Version 2)
Quarter: 2012Q4

REPORT INFORMATION
  Report Type: Report from Study
  Country: AU (occurrence: AU)
  Receive Date: 20120830
  Receipt Date: 20120906
  Transmission Date: 20130627
  Serious: Yes (Other)
  Sender: FDA-Public Use
  Company Number: AU-JNJFOC-20120812653

PATIENT
  Age: 61 Year
  Sex: Female

DRUGS (23)
  1. SIMPONI [Suspect]
     Indication: PSORIATIC ARTHROPATHY
     Route: 058
     Dates: start: 20100525
  2. SIMPONI [Suspect]
     Indication: PSORIATIC ARTHROPATHY
     Route: 058
     Dates: start: 20120728
  3. SIMPONI [Suspect]
     Indication: ANKYLOSING SPONDYLITIS
     Route: 058
     Dates: start: 20100525
  4. SIMPONI [Suspect]
     Indication: ANKYLOSING SPONDYLITIS
     Route: 058
     Dates: start: 20120728
  5. CAPTOPRIL [Suspect]
     Indication: EPILEPSY
  6. LYRICA [Suspect]
     Indication: PAIN
  7. LYRICA [Suspect]
     Indication: EPILEPSY
  8. FENTANYL [Concomitant]
  9. ENDONE [Concomitant]
  10. CLOPIDOGREL [Concomitant]
  11. ASPIRIN [Concomitant]
  12. SOMAC [Concomitant]
  13. ATACAND [Concomitant]
  14. PREDNISOLONE [Concomitant]
  15. INSULIN [Concomitant]
  16. KEFLEX [Concomitant]
  17. CRESTOR [Concomitant]
  18. CYMBALTA [Concomitant]
  19. FOLIC ACID [Concomitant]
  20. METHOTREXATE [Concomitant]
  21. VITAMIN B12 [Concomitant]
  22. FERO GRADUMET [Concomitant]
  23. LASIX [Concomitant]

REACTIONS (6)
  - Cataract operation [Recovering/Resolving]
  - Procedural haemorrhage [Recovering/Resolving]
  - Diarrhoea [Recovering/Resolving]
  - Malaise [Recovering/Resolving]
  - Adverse drug reaction [Recovering/Resolving]
  - Nausea [Recovering/Resolving]
